FAERS Safety Report 6879440-7 (Version None)
Quarter: 2010Q3

REPORT INFORMATION
  Report Type: 
  Country: None (occurrence: None)
  Receive Date: 20100728
  Receipt Date: 20100723
  Transmission Date: 20110219
  Serious: Yes (Life-Threatening, Hospitalization, Other)
  Sender: FDA-Public Use
  Company Number: PHHY2010TR45131

PATIENT
  Sex: Female
  Weight: 25 kg

DRUGS (8)
  1. EXJADE [Suspect]
     Indication: HAEMOSIDEROSIS
     Dosage: 20MG/KG (500 MG) DAILY
     Route: 048
     Dates: start: 20090601, end: 20100705
  2. EXJADE [Suspect]
     Indication: IRON OVERLOAD
  3. TRIMOKS [Concomitant]
     Dosage: ONCE DAILY
     Route: 048
  4. FOLBIOL [Concomitant]
     Dosage: EVERY OTHER DAY
     Route: 048
  5. PENADUR [Concomitant]
     Dosage: ONCE A MONTH
  6. LANSOR [Concomitant]
     Dosage: BID
  7. ENALAPRIL MALEATE [Concomitant]
     Dosage: 5MG/DAY
  8. BACTRIM [Concomitant]

REACTIONS (11)
  - ABDOMINAL PAIN [None]
  - ALTERED STATE OF CONSCIOUSNESS [None]
  - COMA [None]
  - CONVULSION [None]
  - HAEMOLYTIC ANAEMIA [None]
  - HYPERAMMONAEMIA [None]
  - METABOLIC ACIDOSIS [None]
  - METABOLIC DISORDER [None]
  - NAUSEA [None]
  - PERITONEAL DIALYSIS [None]
  - VOMITING [None]
